FAERS Safety Report 6410814-4 (Version None)
Quarter: 2009Q4

REPORT INFORMATION
  Report Type: 
  Country: None (occurrence: None)
  Receive Date: 20091020
  Receipt Date: 20091020
  Transmission Date: 20100525
  Serious: Yes (Life-Threatening)
  Sender: FDA-Public Use
  Company Number: None

PATIENT
  Age: 62 Year
  Sex: Male
  Weight: 69.4003 kg

DRUGS (1)
  1. TACROLIMUS [Suspect]
     Indication: LIVER TRANSPLANT
     Dosage: 2 MG IN THE AM; 1 MG IN THE PM TWICE DAILY PO
     Route: 048
     Dates: start: 20090920, end: 20091001

REACTIONS (3)
  - ECONOMIC PROBLEM [None]
  - LIVER FUNCTION TEST ABNORMAL [None]
  - PRODUCT SUBSTITUTION ISSUE [None]
